FAERS Safety Report 7084833-1 (Version None)
Quarter: 2010Q4

REPORT INFORMATION
  Report Type: 
  Country: None (occurrence: None)
  Receive Date: 20101105
  Receipt Date: 20101026
  Transmission Date: 20110411
  Serious: No
  Sender: FDA-Public Use
  Company Number: US-BIOGENIDEC-2010BI037416

PATIENT
  Age: 44 Year
  Sex: Male

DRUGS (4)
  1. AVONEX [Suspect]
     Indication: MULTIPLE SCLEROSIS
     Route: 030
     Dates: start: 20000101, end: 20030101
  2. AVONEX [Suspect]
     Route: 030
     Dates: start: 20030101, end: 20080101
  3. AVONEX [Suspect]
     Route: 030
     Dates: start: 20080101, end: 20080101
  4. STEROID THERAPY (NOS) [Concomitant]
     Indication: MULTIPLE SCLEROSIS

REACTIONS (3)
  - DIABETES MELLITUS [None]
  - DRUG TOLERANCE [None]
  - INFLUENZA LIKE ILLNESS [None]
